FAERS Safety Report 25962212 (Version 1)
Quarter: 2025Q4

REPORT INFORMATION
  Report Type: Spontaneous
  Country: EU (occurrence: EU)
  Receive Date: 20251027
  Receipt Date: 20251027
  Transmission Date: 20260117
  Serious: Yes (Life-Threatening)
  Sender: TAKEDA
  Company Number: EU-LUNDBECK-DKLU4020818

PATIENT

DRUGS (1)
  1. BRINTELLIX [Suspect]
     Active Substance: VORTIOXETINE HYDROBROMIDE
     Indication: Product used for unknown indication
     Dosage: UNK

REACTIONS (2)
  - Blood pressure fluctuation [Unknown]
  - Fall [Unknown]
